FAERS Safety Report 7509245-5 (Version None)
Quarter: 2011Q2

REPORT INFORMATION
  Report Type: 
  Country: None (occurrence: None)
  Receive Date: 20110527
  Receipt Date: 20110520
  Transmission Date: 20111010
  Serious: Yes (Hospitalization)
  Sender: FDA-Public Use
  Company Number: BR-ROCHE-727980

PATIENT
  Sex: Female
  Weight: 72 kg

DRUGS (6)
  1. TOCILIZUMAB [Suspect]
     Dosage: ROUTE: ENDOVENOUS, FORM: INFUSION; HAD RECEIVED TWO INFUSIONS
     Route: 042
     Dates: start: 20100507, end: 20100701
  2. ARAVA [Concomitant]
  3. CATAFLAM [Suspect]
     Route: 065
  4. ENALAPRIL MALEATE [Concomitant]
  5. ACETYLSALICYLIC ACID SRT [Concomitant]
  6. SINVALIP [Concomitant]

REACTIONS (6)
  - PNEUMONIA [None]
  - URINARY TRACT INFECTION [None]
  - HAEMOLYTIC ANAEMIA [None]
  - PYREXIA [None]
  - GASTRITIS [None]
  - SYSTEMIC LUPUS ERYTHEMATOSUS [None]
